FAERS Safety Report 11224634 (Version 1)
Quarter: 2015Q2

REPORT INFORMATION
  Report Type: Spontaneous
  Country: RU (occurrence: None)
  Receive Date: 20150625
  Receipt Date: 20150625
  Transmission Date: 20150821
  Serious: Yes (Hospitalization, Other)
  Sender: FDA-Public Use
  Company Number: B1013798A

PATIENT
  Age: 37 Year
  Sex: Female

DRUGS (4)
  1. EPIVIR [Suspect]
     Active Substance: LAMIVUDINE
     Indication: HIV INFECTION
     Dosage: U , UNKNOWN
  2. KALETRA [Suspect]
     Active Substance: LOPINAVIR\RITONAVIR
     Indication: HIV INFECTION
     Dosage: , UNKNOWN
  3. COMBIVIR [Suspect]
     Active Substance: LAMIVUDINE\ZIDOVUDINE
     Indication: HIV INFECTION
     Dosage: U, UNKNOWN
  4. STOCRIN [Suspect]
     Active Substance: EFAVIRENZ
     Indication: HIV INFECTION
     Dosage: , UNKNOWN

REACTIONS (13)
  - Blood cholesterol increased [None]
  - Sleep disorder [None]
  - Diarrhoea [None]
  - Drug ineffective [None]
  - Nausea [None]
  - Fatigue [None]
  - CD4 lymphocytes abnormal [None]
  - Vein discolouration [None]
  - Fat tissue increased [None]
  - Pancreatitis [None]
  - Lipodystrophy acquired [None]
  - Abnormal dreams [None]
  - Cholelithiasis [None]
